FAERS Safety Report 7002156-3 (Version None)
Quarter: 2010Q3

REPORT INFORMATION
  Report Type: 
  Country: None (occurrence: None)
  Receive Date: 20100920
  Receipt Date: 20100311
  Transmission Date: 20110219
  Serious: Yes (Other)
  Sender: FDA-Public Use
  Company Number: US-ASTRAZENECA-2010SE10967

PATIENT
  Sex: Female

DRUGS (4)
  1. SEROQUEL XR [Suspect]
     Route: 048
  2. YAZ [Concomitant]
     Route: 065
  3. ABILIFY [Concomitant]
     Route: 065
  4. CELEXA [Concomitant]
     Route: 065

REACTIONS (1)
  - CONVULSION [None]
